FAERS Safety Report 8512931-1 (Version None)
Quarter: 2012Q3

REPORT INFORMATION
  Report Type: 
  Country: None (occurrence: None)
  Receive Date: 20120716
  Receipt Date: 20120704
  Transmission Date: 20120928
  Serious: Yes (Hospitalization)
  Sender: FDA-Public Use
  Company Number: FR-ELI_LILLY_AND_COMPANY-FR201207001005

PATIENT
  Sex: Male

DRUGS (2)
  1. CARBOPLATIN [Concomitant]
     Indication: BLADDER NEOPLASM
     Dosage: UNK
     Dates: start: 20120216, end: 20120216
  2. GEMZAR [Suspect]
     Indication: BLADDER NEOPLASM
     Dosage: UNK
     Route: 042
     Dates: start: 20120216, end: 20120216

REACTIONS (2)
  - MUCOSAL INFLAMMATION [None]
  - FEBRILE BONE MARROW APLASIA [None]
